FAERS Safety Report 20392745 (Version 1)
Quarter: 2022Q1

REPORT INFORMATION
  Report Type: Report from Study
  Country: BR (occurrence: BR)
  Receive Date: 20220128
  Receipt Date: 20220128
  Transmission Date: 20220423
  Serious: Yes (Other)
  Sender: FDA-Public Use
  Company Number: BR-JNJFOC-20220140777

PATIENT
  Sex: Male
  Weight: 103 kg

DRUGS (1)
  1. INFLIXIMAB [Suspect]
     Active Substance: INFLIXIMAB
     Indication: Rheumatoid arthritis
     Dosage: 5 AMPOULES
     Route: 042
     Dates: start: 20141220, end: 2020

REACTIONS (1)
  - Nephrectomy [Unknown]
